FAERS Safety Report 4794248-4 (Version None)
Quarter: 2005Q4

REPORT INFORMATION
  Report Type: 
  Country: None (occurrence: None)
  Receive Date: 20051011
  Receipt Date: 20051005
  Transmission Date: 20060501
  Serious: Yes (Other)
  Sender: FDA-Public Use
  Company Number: US-GLAXOSMITHKLINE-A0577214A

PATIENT
  Age: 42 Year
  Sex: Male

DRUGS (3)
  1. ZIAGEN [Suspect]
     Route: 048
  2. SUSTIVA [Concomitant]
  3. VIREAD [Concomitant]

REACTIONS (7)
  - ABDOMINAL PAIN [None]
  - ASTHENIA [None]
  - COUGH [None]
  - FATIGUE [None]
  - HYPERSENSITIVITY [None]
  - MYALGIA [None]
  - PNEUMOCYSTIS JIROVECI PNEUMONIA [None]
